FAERS Safety Report 7760596-9 (Version None)
Quarter: 2011Q3

REPORT INFORMATION
  Report Type: 
  Country: None (occurrence: None)
  Receive Date: 20110919
  Receipt Date: 20110912
  Transmission Date: 20111222
  Serious: Yes (Hospitalization)
  Sender: FDA-Public Use
  Company Number: FR-ASTRAZENECA-2011SE54913

PATIENT
  Age: 11463 Day
  Sex: Male

DRUGS (4)
  1. LIDOCAINE [Suspect]
     Indication: LOCAL ANAESTHESIA
     Route: 058
     Dates: start: 20110808, end: 20110808
  2. CLONAZEPAM [Concomitant]
  3. XYLOCAINE [Suspect]
     Route: 058
  4. CITALOPRAM HYDROBROMIDE [Concomitant]

REACTIONS (2)
  - WRONG DRUG ADMINISTERED [None]
  - CONVULSION [None]
